FAERS Safety Report 5926604-2 (Version None)
Quarter: 2008Q4

REPORT INFORMATION
  Report Type: 
  Country: None (occurrence: None)
  Receive Date: 20081022
  Receipt Date: 20081013
  Transmission Date: 20090506
  Serious: Yes (Hospitalization)
  Sender: FDA-Public Use
  Company Number: A0746651A

PATIENT
  Age: 51 Year
  Sex: Male
  Weight: 49 kg

DRUGS (3)
  1. LAPATINIB [Suspect]
     Dosage: 1500MG PER DAY
     Route: 048
     Dates: start: 20080818
  2. CISPLATIN [Suspect]
     Dosage: 100MGM2 CYCLIC
     Route: 042
     Dates: start: 20080827
  3. RADIOTHERAPY [Suspect]
     Route: 061

REACTIONS (2)
  - HYPERURICAEMIA [None]
  - HYPONATRAEMIA [None]
